FAERS Safety Report 6902493-4 (Version None)
Quarter: 2010Q3

REPORT INFORMATION
  Report Type: 
  Country: None (occurrence: None)
  Receive Date: 20100802
  Receipt Date: 20100802
  Transmission Date: 20110219
  Serious: No
  Sender: FDA-Public Use
  Company Number: None

PATIENT
  Age: 48 Year
  Sex: Male
  Weight: 81.6475 kg

DRUGS (1)
  1. ZICAM COLD REMEDY 2X ZINCUM GLUCONICUM MATRIXX [Suspect]
     Indication: NASOPHARYNGITIS
     Dosage: ONE SQUIRT EVERY 2-4 HOURS NASAL
     Route: 045
     Dates: start: 20060401, end: 20060402

REACTIONS (1)
  - PAROSMIA [None]
